FAERS Safety Report 5212719-3 (Version None)
Quarter: 2006Q4

REPORT INFORMATION
  Report Type: 
  Country: None (occurrence: None)
  Receive Date: 20061115
  Receipt Date: 20060721
  Transmission Date: 20070319
  Serious: Yes (Hospitalization)
  Sender: FDA-Public Use
  Company Number: 200614739BWH

PATIENT
  Age: 52 Year
  Sex: Male
  Weight: 84.8226 kg

DRUGS (7)
  1. NEXAVAR [Suspect]
     Indication: METASTATIC RENAL CELL CARCINOMA
     Dosage: 400 MG, BID, ORAL
     Route: 048
     Dates: start: 20051201
  2. OSCAL [CALCIUM CARBONATE] [Concomitant]
  3. LEVOXYL [Concomitant]
  4. BENZATROPINE [Concomitant]
  5. HALOPERIDOL [Concomitant]
  6. MORPHINE [Concomitant]
  7. MEGACE [Concomitant]

REACTIONS (6)
  - ABASIA [None]
  - MUSCULAR WEAKNESS [None]
  - PAIN IN EXTREMITY [None]
  - PALMAR-PLANTAR ERYTHRODYSAESTHESIA SYNDROME [None]
  - SKIN EXFOLIATION [None]
  - SKIN HYPERTROPHY [None]
